FAERS Safety Report 26000696 (Version 1)
Quarter: 2025Q4

REPORT INFORMATION
  Report Type: Spontaneous
  Country: US (occurrence: None)
  Receive Date: 20251104
  Receipt Date: 20251104
  Transmission Date: 20260118
  Serious: Yes (Other)
  Sender: FDA-CTU
  Company Number: None

PATIENT
  Age: 0 Year
  Sex: Female

DRUGS (1)
  1. VITAMIN K1 [Suspect]
     Active Substance: PHYTONADIONE
     Dates: start: 20201001

REACTIONS (3)
  - Jaundice [None]
  - Conjunctival discolouration [None]
  - Yellow skin [None]

NARRATIVE: CASE EVENT DATE: 20201001
